FAERS Safety Report 17347892 (Version 1)
Quarter: 2020Q1

REPORT INFORMATION
  Report Type: Spontaneous
  Country: US (occurrence: US)
  Receive Date: 20200114
  Receipt Date: 20200114
  Transmission Date: 20200409
  Serious: No
  Sender: FDA-Public Use
  Company Number: None

PATIENT
  Age: 91 Year
  Sex: Female

DRUGS (11)
  1. VITAMIN C [Concomitant]
     Active Substance: ASCORBIC ACID
  2. MAGNESIUM [Concomitant]
     Active Substance: MAGNESIUM
  3. CALCIUM [Concomitant]
     Active Substance: CALCIUM
  4. COQ10 [Concomitant]
     Active Substance: UBIDECARENONE
  5. BUMETANIDE. [Concomitant]
     Active Substance: BUMETANIDE
  6. MELATONIN [Concomitant]
     Active Substance: MELATONIN
  7. RANITIDINE HCL [Suspect]
     Active Substance: RANITIDINE HYDROCHLORIDE
     Indication: GASTROOESOPHAGEAL REFLUX DISEASE
     Dosage: ?          QUANTITY:2 DF DOSAGE FORM;?
     Route: 048
  8. VITAMIN D3 [Concomitant]
     Active Substance: CHOLECALCIFEROL
  9. BILBERRY [Concomitant]
     Active Substance: BILBERRY
  10. LUTEIN [Concomitant]
     Active Substance: LUTEIN
  11. ELDERBERRY [Concomitant]
     Active Substance: HERBALS

REACTIONS (2)
  - Frequent bowel movements [None]
  - Rectal haemorrhage [None]

NARRATIVE: CASE EVENT DATE: 20190209
